FAERS Safety Report 6190896-8 (Version None)
Quarter: 2009Q2

REPORT INFORMATION
  Report Type: 
  Country: None (occurrence: None)
  Receive Date: 20090513
  Receipt Date: 20090428
  Transmission Date: 20091009
  Serious: Yes (Death, Life-Threatening)
  Sender: FDA-Public Use
  Company Number: 2009S1007450

PATIENT
  Age: 75 Year

DRUGS (9)
  1. ALENDRONIC ACID (ALENDRONIC ACID) [Suspect]
     Indication: OSTEOPOROSIS
     Dosage: 70 MG; ; ORAL
     Route: 048
     Dates: start: 20090310, end: 20090324
  2. ASPIRIN [Concomitant]
  3. BUMETANIDE [Concomitant]
  4. CALCICHEW D3 [Concomitant]
  5. DIGOXIN [Concomitant]
  6. LOSARTAN POTASSIUM [Concomitant]
  7. OMEPRAZOLE [Concomitant]
  8. SLOZEM [Concomitant]
  9. TAMSULOSIN HCL [Concomitant]

REACTIONS (2)
  - STEVENS-JOHNSON SYNDROME [None]
  - TOXIC EPIDERMAL NECROLYSIS [None]
